FAERS Safety Report 24284218 (Version 1)
Quarter: 2024Q3

REPORT INFORMATION
  Report Type: Spontaneous
  Country: ZA (occurrence: None)
  Receive Date: 20240905
  Receipt Date: 20240905
  Transmission Date: 20241016
  Serious: Yes (Hospitalization)
  Sender: ASTRAZENECA
  Company Number: 2024A172499

PATIENT
  Age: 30 Year
  Sex: Female

DRUGS (8)
  1. BUDESONIDE\FORMOTEROL [Suspect]
     Active Substance: BUDESONIDE\FORMOTEROL
     Indication: Asthma
     Dosage: 160/4.5 MCG UNKNOWN
     Route: 055
  2. BUDESONIDE\FORMOTEROL [Suspect]
     Active Substance: BUDESONIDE\FORMOTEROL
     Indication: Asthma
     Dosage: 160/4.5 MCG UNKNOWN
     Route: 055
  3. FLUTICASONE FUROATE [Concomitant]
     Active Substance: FLUTICASONE FUROATE
     Indication: Hypersensitivity
     Route: 045
  4. SERTRALINE HYDROCHLORIDE [Concomitant]
     Active Substance: SERTRALINE HYDROCHLORIDE
     Indication: Psychiatric care
     Route: 048
  5. PREDNISONE [Concomitant]
     Active Substance: PREDNISONE
     Route: 048
  6. FEXO [Concomitant]
     Indication: Hypersensitivity
     Route: 048
  7. CLOXIN [Concomitant]
     Route: 048
  8. LEVALBUTEROL HYDROCHLORIDE [Concomitant]
     Active Substance: LEVALBUTEROL HYDROCHLORIDE
     Indication: Asthma
     Route: 055

REACTIONS (3)
  - Bronchitis [Recovered/Resolved]
  - COVID-19 [Recovered/Resolved]
  - Drug ineffective [Unknown]
